FAERS Safety Report 10094502 (Version 1)
Quarter: 2014Q2

REPORT INFORMATION
  Report Type: Spontaneous
  Country: US (occurrence: None)
  Receive Date: 20140421
  Receipt Date: 20140421
  Transmission Date: 20141212
  Serious: Yes (Other)
  Sender: FDA-Public Use
  Company Number: None

PATIENT
  Age: 54 Year
  Sex: Female
  Weight: 61.24 kg

DRUGS (1)
  1. BUPROPION XL 300 MG MYLAN [Suspect]
     Indication: DEPRESSION
     Dosage: 1 PILL, ONCE DAILY, TAKEN BY MOUTH
     Route: 048
     Dates: start: 20140410, end: 20140417

REACTIONS (11)
  - Agitation [None]
  - Palpitations [None]
  - Depression [None]
  - Crying [None]
  - Headache [None]
  - Throat tightness [None]
  - Feeling jittery [None]
  - Bruxism [None]
  - Activities of daily living impaired [None]
  - Withdrawal syndrome [None]
  - Product substitution issue [None]
